FAERS Safety Report 20167346 (Version 1)
Quarter: 2021Q4

REPORT INFORMATION
  Report Type: Spontaneous
  Country: US (occurrence: None)
  Receive Date: 20211208
  Receipt Date: 20211208
  Transmission Date: 20220303
  Serious: Yes (Disabling)
  Sender: FDA-Public Use
  Company Number: None

PATIENT
  Age: 70 Year
  Sex: Male
  Weight: 54 kg

DRUGS (4)
  1. RECLAST [Suspect]
     Active Substance: ZOLEDRONIC ACID
     Indication: Osteoporosis
     Route: 058
     Dates: start: 20211122, end: 20211122
  2. NEXIUM [Concomitant]
     Active Substance: ESOMEPRAZOLE MAGNESIUM
  3. TIMOLOL [Concomitant]
     Active Substance: TIMOLOL
  4. VITAMIN D [Concomitant]
     Active Substance: VITAMIN D NOS

REACTIONS (7)
  - Vomiting [None]
  - Headache [None]
  - Eye pain [None]
  - Herpes virus infection [None]
  - White blood cell count increased [None]
  - Platelet count increased [None]
  - Pyrexia [None]

NARRATIVE: CASE EVENT DATE: 20211122
